FAERS Safety Report 7457978-1 (Version None)
Quarter: 2011Q2

REPORT INFORMATION
  Report Type: 
  Country: None (occurrence: None)
  Receive Date: 20110504
  Receipt Date: 20110428
  Transmission Date: 20111010
  Serious: Yes (Hospitalization)
  Sender: FDA-Public Use
  Company Number: DE-AMGEN-DEUCT2011007202

PATIENT
  Age: 76 Year
  Sex: Male

DRUGS (3)
  1. PREDNISOLONE [Concomitant]
     Dosage: 10 MG, UNK
  2. TILIDINE [Concomitant]
     Dosage: 50 GTT, THREE TIMES (NOT FURTHER SPECIFIED)
  3. ETANERCEPT [Suspect]
     Indication: RHEUMATOID ARTHRITIS
     Dosage: 50 MG, UNK
     Dates: start: 20100101, end: 20100701

REACTIONS (1)
  - BLADDER CANCER [None]
